FAERS Safety Report 10356041 (Version 5)
Quarter: 2015Q2

REPORT INFORMATION
  Report Type: Report from Study
  Country: BR (occurrence: BR)
  Receive Date: 20140801
  Receipt Date: 20150525
  Transmission Date: 20150821
  Serious: Yes (Hospitalization)
  Sender: FDA-Public Use
  Company Number: BR-BIOGENIDEC-2014BI075127

PATIENT
  Age: 61 Year
  Sex: Male

DRUGS (10)
  1. LIORAN [Concomitant]
  2. NOVALGIN [Concomitant]
     Active Substance: METAMIZOLE SODIUM
     Indication: PREMEDICATION
  3. GLIFAGE [Concomitant]
     Active Substance: METFORMIN HYDROCHLORIDE
     Indication: GLUCOSE TOLERANCE IMPAIRED
  4. TAMOXIFEN [Concomitant]
     Active Substance: TAMOXIFEN
  5. SIMVASTATIN. [Concomitant]
     Active Substance: SIMVASTATIN
     Indication: BLOOD CHOLESTEROL ABNORMAL
  6. FLUOXETINE [Concomitant]
     Active Substance: FLUOXETINE\FLUOXETINE HYDROCHLORIDE
  7. STILNOX [Concomitant]
     Active Substance: ZOLPIDEM TARTRATE
  8. AVONEX [Suspect]
     Active Substance: INTERFERON BETA-1A
     Indication: MULTIPLE SCLEROSIS
     Route: 030
     Dates: start: 201212, end: 201301
  9. VASOPRIL [Concomitant]
     Active Substance: FOSINOPRIL
     Indication: HYPERTENSION
  10. AVONEX [Suspect]
     Active Substance: INTERFERON BETA-1A
     Indication: MULTIPLE SCLEROSIS
     Route: 030
     Dates: start: 20130114

REACTIONS (9)
  - Slow speech [Recovered/Resolved]
  - Fatigue [Recovered/Resolved]
  - Depression [Not Recovered/Not Resolved]
  - Testicular necrosis [Recovered/Resolved]
  - Back pain [Not Recovered/Not Resolved]
  - Breast cancer male [Not Recovered/Not Resolved]
  - Fall [Recovered/Resolved]
  - Dysphagia [Recovered/Resolved]
  - Lack of application site rotation [Not Recovered/Not Resolved]

NARRATIVE: CASE EVENT DATE: 201212
